FAERS Safety Report 4748506-X (Version None)
Quarter: 2005Q3

REPORT INFORMATION
  Report Type: 
  Country: None (occurrence: None)
  Receive Date: 20050818
  Receipt Date: 20050818
  Transmission Date: 20060218
  Serious: Yes (Life-Threatening, Hospitalization)
  Sender: FDA-Public Use
  Company Number: None

PATIENT
  Age: 82 Year
  Sex: Male
  Weight: 70 kg

DRUGS (1)
  1. VISIPAQUE [Suspect]
     Indication: SCAN
     Dosage: 100 ML  ONCE INTRAVENOU  (ONE TIME)
     Route: 042
     Dates: start: 20050517

REACTIONS (6)
  - BLOOD GLUCOSE INCREASED [None]
  - CHEST DISCOMFORT [None]
  - COLD SWEAT [None]
  - ERYTHEMA [None]
  - HYPOTENSION [None]
  - MALAISE [None]
